FAERS Safety Report 9671224 (Version 2)
Quarter: 2013Q4

REPORT INFORMATION
  Report Type: Spontaneous
  Country: ES (occurrence: ES)
  Receive Date: 20131106
  Receipt Date: 20131113
  Transmission Date: 20140711
  Serious: Yes (Death)
  Sender: FDA-Public Use
  Company Number: ES-JNJFOC-20131019370

PATIENT
  Sex: Male
  Weight: 65 kg

DRUGS (2)
  1. XEPLION [Suspect]
     Indication: SCHIZOPHRENIA
     Route: 030
     Dates: start: 20120829
  2. ESCITALOPRAM [Suspect]
     Indication: SCHIZOPHRENIA
     Route: 065
     Dates: start: 20120829

REACTIONS (2)
  - Cardiac arrest [Fatal]
  - Infarction [Unknown]
